FAERS Safety Report 5910985-X (Version None)
Quarter: 2008Q4

REPORT INFORMATION
  Report Type: 
  Country: None (occurrence: None)
  Receive Date: 20081003
  Receipt Date: 20081003
  Transmission Date: 20090506
  Serious: No
  Sender: FDA-Public Use
  Company Number: None

PATIENT
  Age: 54 Year
  Sex: Female
  Weight: 95.2554 kg

DRUGS (2)
  1. BUPROPION HCL [Suspect]
     Indication: DEPRESSION
     Dosage: ONE PO HS DAILY PO
     Route: 048
     Dates: start: 20080813, end: 20080819
  2. WELLBUTRIN XL [Suspect]

REACTIONS (5)
  - ANXIETY [None]
  - IRRITABILITY [None]
  - SEROTONIN SYNDROME [None]
  - THERAPEUTIC RESPONSE UNEXPECTED WITH DRUG SUBSTITUTION [None]
  - TREMOR [None]
